FAERS Safety Report 8320937-0 (Version None)
Quarter: 2012Q2

REPORT INFORMATION
  Report Type: 
  Country: None (occurrence: None)
  Receive Date: 20120430
  Receipt Date: 20120424
  Transmission Date: 20120825
  Serious: Yes (Other)
  Sender: FDA-Public Use
  Company Number: PHHY2011CH94595

PATIENT
  Sex: Female

DRUGS (5)
  1. FEMARA [Suspect]
     Indication: BREAST CANCER
     Dosage: 2.5 MG, DAILY
     Route: 048
     Dates: start: 20071001
  2. ASPIRIN [Concomitant]
     Dosage: 100 MG, DAILY
  3. HYGROTON [Concomitant]
     Dosage: 0.5 DF, PER DAY
  4. ZOLDORM [Concomitant]
     Dosage: 0.5 DF, DAILY
  5. CALCIMAGON-D3 [Concomitant]
     Dosage: 14 MG, UNK
     Route: 048

REACTIONS (3)
  - HEPATITIS C [None]
  - NEOPLASM MALIGNANT [None]
  - CHRONIC MYELOID LEUKAEMIA [None]
